FAERS Safety Report 8962233 (Version 1)
Quarter: 2012Q4

REPORT INFORMATION
  Report Type: 
  Country: FR (occurrence: FR)
  Receive Date: 20121211
  Receipt Date: 20121211
  Transmission Date: 20130627
  Serious: Yes (Other)
  Sender: FDA-Public Use
  Company Number: PHHY2012FR112492

PATIENT
  Age: 70 Year
  Sex: Male

DRUGS (3)
  1. TAREG [Suspect]
     Dosage: UNK UKN, UNK
     Dates: end: 201201
  2. TAREG [Suspect]
     Dosage: 80 mg, QD
     Route: 048
     Dates: start: 201209, end: 201210
  3. VALSARTAN [Suspect]
     Dosage: UNK UKN, UNK
     Dates: start: 201201, end: 201209

REACTIONS (3)
  - Angioedema [Recovered/Resolved]
  - Lip oedema [Recovered/Resolved]
  - Oedema [Recovered/Resolved]
